FAERS Safety Report 5677679-X (Version None)
Quarter: 2008Q1

REPORT INFORMATION
  Report Type: 
  Country: None (occurrence: None)
  Receive Date: 20080324
  Receipt Date: 20080229
  Transmission Date: 20080703
  Serious: No
  Sender: FDA-Public Use
  Company Number: US-BOEHRINGER INGELHEIM GMBH, GERMANY-2008-BP-02073BP

PATIENT
  Age: 64 Year
  Sex: Male

DRUGS (3)
  1. COMBIVENT [Suspect]
     Indication: CHRONIC OBSTRUCTIVE PULMONARY DISEASE
     Route: 055
  2. SEREVENT [Concomitant]
  3. CHANTIX [Concomitant]
     Indication: EX-SMOKER

REACTIONS (3)
  - BRONCHITIS [None]
  - CHEST DISCOMFORT [None]
  - DYSPNOEA [None]
